FAERS Safety Report 21340692 (Version 1)
Quarter: 2022Q3

REPORT INFORMATION
  Report Type: Spontaneous
  Country: CN (occurrence: CN)
  Receive Date: 20220916
  Receipt Date: 20220916
  Transmission Date: 20221027
  Serious: Yes (Other)
  Sender: FDA-Public Use
  Company Number: None

PATIENT
  Age: 91 Year
  Sex: Male
  Weight: 48 kg

DRUGS (9)
  1. IVABRADINE HYDROCHLORIDE [Suspect]
     Active Substance: IVABRADINE HYDROCHLORIDE
     Indication: Cardiac failure
     Dosage: 0.25 MG, QD
     Route: 045
     Dates: start: 20220829, end: 20220906
  2. CEFTAZIDIME [Suspect]
     Active Substance: CEFTAZIDIME
     Indication: Pneumonia
     Dosage: 2 G, BID
     Route: 041
     Dates: start: 20220831, end: 20220904
  3. AMIKACIN SULFATE [Suspect]
     Active Substance: AMIKACIN SULFATE
     Indication: Pneumonia
     Dosage: 0.2 G, BID
     Dates: start: 20220827, end: 20220831
  4. RIVAROXABAN [Concomitant]
     Active Substance: RIVAROXABAN
     Indication: Prophylaxis
     Dosage: 10 MG, QD
     Route: 045
     Dates: start: 20220829, end: 20220909
  5. TORSEMIDE [Concomitant]
     Active Substance: TORSEMIDE
     Indication: Cardiac failure
     Dosage: 5 MG, QD
     Route: 045
     Dates: start: 20220829, end: 20220909
  6. SODIUM CHLORIDE [Concomitant]
     Active Substance: SODIUM CHLORIDE
     Indication: Product used for unknown indication
     Dosage: 5 ML, BID
     Dates: start: 20220827, end: 20220831
  7. SODIUM CHLORIDE [Concomitant]
     Active Substance: SODIUM CHLORIDE
     Dosage: 100 MILLILITER, QD
     Route: 041
     Dates: start: 20220831, end: 20220904
  8. DOXYCYCLINE [Concomitant]
     Active Substance: DOXYCYCLINE
     Indication: Pneumonia
     Dosage: 0.1 G, BID
     Route: 045
     Dates: start: 20220827, end: 20220909
  9. Enteral nutritional suspension (SP) [Concomitant]
     Indication: Malnutrition
     Dosage: 500 ML, QD
     Route: 045
     Dates: start: 20220829, end: 20220909

REACTIONS (1)
  - Eosinophilia [Recovering/Resolving]

NARRATIVE: CASE EVENT DATE: 20220831
